FAERS Safety Report 7804741-5 (Version None)
Quarter: 2011Q4

REPORT INFORMATION
  Report Type: 
  Country: None (occurrence: None)
  Receive Date: 20111010
  Receipt Date: 20110927
  Transmission Date: 20120403
  Serious: Yes (Hospitalization)
  Sender: FDA-Public Use
  Company Number: IE-ALEXION PHARMACEUTICALS INC.-A201100122

PATIENT
  Sex: Female

DRUGS (3)
  1. ERYTHROMYCIN [Concomitant]
  2. WARFARIN SODIUM [Concomitant]
     Dosage: 5 MG, QD
     Route: 048
  3. SOLIRIS [Suspect]
     Indication: PAROXYSMAL NOCTURNAL HAEMOGLOBINURIA
     Dosage: 900 MG, Q2W
     Route: 042
     Dates: start: 20041201

REACTIONS (3)
  - PNEUMONIA [None]
  - HAEMOGLOBIN DECREASED [None]
  - ASTHMATIC CRISIS [None]
